FAERS Safety Report 20419472 (Version 1)
Quarter: 2022Q1

REPORT INFORMATION
  Report Type: Spontaneous
  Country: CA (occurrence: CA)
  Receive Date: 20220203
  Receipt Date: 20220203
  Transmission Date: 20220423
  Serious: Yes (Other)
  Sender: FDA-Public Use
  Company Number: CA-NEBO-PC007964

PATIENT
  Age: 29 Year
  Sex: Female

DRUGS (1)
  1. MONOFERRIC [Suspect]
     Active Substance: FERRIC DERISOMALTOSE
     Indication: Iron deficiency
     Route: 042

REACTIONS (5)
  - Dysphagia [Unknown]
  - Oropharyngeal pain [Unknown]
  - Back pain [Unknown]
  - Chest pain [Unknown]
  - Flushing [Unknown]
